FAERS Safety Report 11121483 (Version 1)
Quarter: 2015Q2

REPORT INFORMATION
  Report Type: Spontaneous
  Country: BR (occurrence: BR)
  Receive Date: 20150519
  Receipt Date: 20150519
  Transmission Date: 20150821
  Serious: Yes (Other)
  Sender: FDA-Public Use
  Company Number: BR-JNJFOC-20150510207

PATIENT
  Sex: Female

DRUGS (7)
  1. ACETYLSALICYLIC ACID [Concomitant]
     Active Substance: ASPIRIN
     Route: 065
  2. SIMPONI [Suspect]
     Active Substance: GOLIMUMAB
     Indication: RHEUMATOID ARTHRITIS
     Route: 058
  3. DOMPERIDONE [Concomitant]
     Active Substance: DOMPERIDONE
     Route: 065
     Dates: start: 201412
  4. CLOPIDOGREL SULFATE [Concomitant]
     Active Substance: CLOPIDOGREL BISULFATE
     Route: 065
  5. FIBER LAX [Concomitant]
     Active Substance: CALCIUM POLYCARBOPHIL
     Route: 065
  6. SIMVASTATIN. [Concomitant]
     Active Substance: SIMVASTATIN
     Route: 065
  7. OMEPRAZOLE. [Concomitant]
     Active Substance: OMEPRAZOLE
     Route: 065

REACTIONS (7)
  - Inappropriate schedule of drug administration [Not Recovered/Not Resolved]
  - Device malfunction [Unknown]
  - Venous occlusion [Recovering/Resolving]
  - Gallbladder operation [Not Recovered/Not Resolved]
  - Abdominal hernia [Not Recovered/Not Resolved]
  - Blood cholesterol increased [Not Recovered/Not Resolved]
  - Nervous system disorder [Recovering/Resolving]

NARRATIVE: CASE EVENT DATE: 2013
